FAERS Safety Report 7503674-1 (Version None)
Quarter: 2011Q2

REPORT INFORMATION
  Report Type: 
  Country: None (occurrence: None)
  Receive Date: 20110525
  Receipt Date: 20110519
  Transmission Date: 20111010
  Serious: Yes (Other)
  Sender: FDA-Public Use
  Company Number: CH-US-EMD SERONO, INC.-7060540

PATIENT
  Sex: Female
  Weight: 75 kg

DRUGS (1)
  1. REBIF [Suspect]
     Indication: MULTIPLE SCLEROSIS
     Route: 058
     Dates: start: 20100621

REACTIONS (6)
  - PNEUMONIA [None]
  - BLISTER [None]
  - RASH PRURITIC [None]
  - SKIN EXFOLIATION [None]
  - INFLUENZA LIKE ILLNESS [None]
  - FATIGUE [None]
